FAERS Safety Report 10077425 (Version 1)
Quarter: 2014Q2

REPORT INFORMATION
  Report Type: Spontaneous
  Country: US (occurrence: US)
  Receive Date: 20140414
  Receipt Date: 20140414
  Transmission Date: 20141212
  Serious: No
  Sender: FDA-Public Use
  Company Number: US-BANPHARM-20131503

PATIENT
  Age: 92 Year
  Sex: Female
  Weight: 58.96 kg

DRUGS (1)
  1. ALEVE LIQUID GELS 220 MG [Suspect]
     Indication: PAIN IN EXTREMITY
     Dosage: 220 MG, 1 DF,
     Route: 048
     Dates: start: 20130711, end: 20130711

REACTIONS (2)
  - Nausea [Recovering/Resolving]
  - Abdominal discomfort [Recovering/Resolving]
